FAERS Safety Report 4715993-2 (Version None)
Quarter: 2005Q3

REPORT INFORMATION
  Report Type: 
  Country: None (occurrence: None)
  Receive Date: 20050718
  Receipt Date: 20050714
  Transmission Date: 20060218
  Serious: Yes (Hospitalization)
  Sender: FDA-Public Use
  Company Number: 176

PATIENT
  Age: 69 Year
  Sex: Female

DRUGS (11)
  1. MELPHALAN [Suspect]
     Indication: MULTIPLE MYELOMA
     Route: 042
     Dates: start: 20050123
  2. DEXAMETHASONE [Suspect]
     Dosage: 20MG CYCLIC
     Route: 048
     Dates: start: 20050316
  3. THALIDOMIDE [Suspect]
     Dosage: 100MG PER DAY
     Route: 048
     Dates: start: 20050316
  4. ACYCLOVIR [Concomitant]
     Dosage: 400MG TWICE PER DAY
     Route: 048
  5. LEVAQUIN [Concomitant]
     Route: 048
  6. WELLBUTRIN [Concomitant]
     Indication: DEPRESSION
     Dosage: 150MG TWICE PER DAY
     Route: 048
  7. COLAZAL [Concomitant]
     Dosage: 550MG TWICE PER DAY
     Route: 048
  8. URSODIOL [Concomitant]
     Indication: BILIARY CIRRHOSIS
     Dosage: 1TAB THREE TIMES PER DAY
     Route: 048
  9. PROPRANOLOL [Concomitant]
     Route: 048
  10. ZANTAC [Concomitant]
     Dosage: 150MG TWICE PER DAY
     Route: 048
  11. ATIVAN [Concomitant]
     Indication: ANXIETY
     Dosage: 1MG TWICE PER DAY
     Route: 048

REACTIONS (4)
  - BRONCHOPULMONARY ASPERGILLOSIS [None]
  - COUGH [None]
  - PYREXIA [None]
  - SINUSITIS [None]
